FAERS Safety Report 5946741-6 (Version None)
Quarter: 2008Q4

REPORT INFORMATION
  Report Type: 
  Country: None (occurrence: None)
  Receive Date: 20081110
  Receipt Date: 20081029
  Transmission Date: 20090506
  Serious: Yes (Hospitalization)
  Sender: FDA-Public Use
  Company Number: US-BIOGENIDEC-2008BI010388

PATIENT
  Age: 51 Year
  Sex: Female

DRUGS (1)
  1. AVONEX [Suspect]
     Indication: MULTIPLE SCLEROSIS
     Route: 030
     Dates: start: 20070719

REACTIONS (4)
  - CHOLELITHIASIS [None]
  - MUSCLE SPASMS [None]
  - PYREXIA [None]
  - WHITE BLOOD CELL COUNT INCREASED [None]
